FAERS Safety Report 6192203-3 (Version None)
Quarter: 2009Q2

REPORT INFORMATION
  Report Type: 
  Country: None (occurrence: None)
  Receive Date: 20090515
  Receipt Date: 20090515
  Transmission Date: 20091009
  Serious: Yes (Hospitalization, Other)
  Sender: FDA-Public Use
  Company Number: US-PFIZER INC-2009190076

PATIENT
  Sex: Female
  Weight: 58.957 kg

DRUGS (7)
  1. DETROL LA [Suspect]
     Indication: URINARY INCONTINENCE
     Dosage: UNIT DOSE: UNKNOWN;
     Dates: start: 20090121
  2. COMBIVENT [Concomitant]
  3. ADVAIR HFA [Concomitant]
  4. MONTELUKAST SODIUM [Concomitant]
  5. TIAZAC [Concomitant]
  6. COZAAR [Concomitant]
  7. HYDROCHLOROTHIAZIDE [Concomitant]

REACTIONS (4)
  - EATING DISORDER [None]
  - GASTROINTESTINAL MOTILITY DISORDER [None]
  - HAEMORRHAGE [None]
  - INTESTINAL OBSTRUCTION [None]
